FAERS Safety Report 14205653 (Version 1)
Quarter: 2017Q4

REPORT INFORMATION
  Report Type: Spontaneous
  Country: FR (occurrence: FR)
  Receive Date: 20171120
  Receipt Date: 20171120
  Transmission Date: 20180321
  Serious: Yes (Hospitalization)
  Sender: FDA-Public Use
  Company Number: PHHY2017FR167781

PATIENT
  Age: 72 Year
  Sex: Female

DRUGS (3)
  1. ZOPHREN [Suspect]
     Active Substance: ONDANSETRON
     Indication: PRODUCT USED FOR UNKNOWN INDICATION
     Dosage: 8MG/4ML (ONCE PER CYCLE)
     Route: 042
     Dates: start: 20171016, end: 20171016
  2. SOLU-MEDROL [Suspect]
     Active Substance: METHYLPREDNISOLONE SODIUM SUCCINATE
     Indication: PRODUCT USED FOR UNKNOWN INDICATION
     Dosage: 80 MG, (ONCE PER CYCLE)
     Route: 042
     Dates: start: 20171016, end: 20171016
  3. OXALIPLATIN ACCORD [Suspect]
     Active Substance: OXALIPLATIN
     Indication: COLON CANCER
     Dosage: 255 MG, (ONCE PER CYCLE)
     Route: 042
     Dates: start: 20171016, end: 20171016

REACTIONS (2)
  - Bronchospasm [Recovered/Resolved]
  - Respiratory disorder [Recovered/Resolved]

NARRATIVE: CASE EVENT DATE: 20171016
